FAERS Safety Report 26066227 (Version 1)
Quarter: 2025Q4

REPORT INFORMATION
  Report Type: Report from Study
  Country: CA (occurrence: CA)
  Receive Date: 20251119
  Receipt Date: 20251119
  Transmission Date: 20260118
  Serious: Yes (Other)
  Sender: PFIZER
  Company Number: CA-PFIZER INC-202500225898

PATIENT
  Age: 86 Year
  Sex: Female

DRUGS (1)
  1. RITUXIMAB [Suspect]
     Active Substance: RITUXIMAB
     Indication: Immune thrombocytopenia
     Dosage: 500 MG, 1 EVERY 4 WEEKS
     Route: 042

REACTIONS (3)
  - Feeling cold [Unknown]
  - Hypertension [Unknown]
  - Off label use [Unknown]
